FAERS Safety Report 6390788-5 (Version None)
Quarter: 2009Q4

REPORT INFORMATION
  Report Type: 
  Country: None (occurrence: None)
  Receive Date: 20091006
  Receipt Date: 20091001
  Transmission Date: 20100525
  Serious: Yes (Life-Threatening, Other)
  Sender: FDA-Public Use
  Company Number: NL-WYE-G04549409

PATIENT
  Age: 32 Year
  Sex: Female
  Weight: 65 kg

DRUGS (2)
  1. EFFEXOR XR [Suspect]
     Indication: DEPRESSION
     Dates: start: 20050101, end: 20090922
  2. 0.15MG LEVONORGESTREL/0.03MG ETHINYL ESTRADIOL [Suspect]
     Indication: CONTRACEPTION
     Dosage: UNK
     Dates: start: 20000101

REACTIONS (3)
  - METASTASES TO LIVER [None]
  - METASTASIS [None]
  - NEUROENDOCRINE TUMOUR [None]
